FAERS Safety Report 10213059 (Version 1)
Quarter: 2014Q2

REPORT INFORMATION
  Report Type: Spontaneous
  Country: FR (occurrence: FR)
  Receive Date: 20140603
  Receipt Date: 20140603
  Transmission Date: 20141212
  Serious: Yes (Hospitalization)
  Sender: FDA-Public Use
  Company Number: FR-AMGEN INC.-FRASP2014039775

PATIENT
  Age: 92 Year
  Sex: Male

DRUGS (2)
  1. XGEVA [Suspect]
     Indication: PROSTATE CANCER METASTATIC
     Dosage: 120 MG, UNK
     Route: 058
     Dates: start: 20140102, end: 20140113
  2. IDEOS [Concomitant]
     Dosage: UNK
     Dates: start: 20140102

REACTIONS (3)
  - Blood bicarbonate decreased [Unknown]
  - Hypocalcaemia [Unknown]
  - Blood phosphorus decreased [Unknown]
